FAERS Safety Report 5662549-3 (Version None)
Quarter: 2008Q1

REPORT INFORMATION
  Report Type: 
  Country: None (occurrence: None)
  Receive Date: 20080310
  Receipt Date: 20080310
  Transmission Date: 20080703
  Serious: No
  Sender: FDA-Public Use
  Company Number: None

PATIENT
  Age: 81 Year
  Sex: Female
  Weight: 54.94 kg

DRUGS (6)
  1. TAMIFLU [Suspect]
     Indication: INFLUENZA
     Dosage: 75 MG BID PO
     Route: 048
     Dates: start: 20080302, end: 20080302
  2. CATAPRES [Concomitant]
  3. TAMBOCOR [Concomitant]
  4. HEPARIN [Concomitant]
  5. VASOTEC [Concomitant]
  6. HYDROCHLOROTHIAZIDE [Concomitant]

REACTIONS (1)
  - DELIRIUM [None]
